FAERS Safety Report 5379372-X (Version None)
Quarter: 2007Q3

REPORT INFORMATION
  Report Type: 
  Country: None (occurrence: None)
  Receive Date: 20070705
  Receipt Date: 20070625
  Transmission Date: 20080115
  Serious: Yes (Hospitalization, Other)
  Sender: FDA-Public Use
  Company Number: US-PFIZER INC-2007052662

PATIENT

DRUGS (3)
  1. NEURONTIN [Suspect]
     Indication: MENTAL DISORDER
  2. ZYPREXA [Interacting]
     Indication: MENTAL DISORDER
  3. DEPAKOTE [Interacting]
     Indication: MENTAL DISORDER
     Dosage: DAILY DOSE:1000MG

REACTIONS (6)
  - AMNESIA [None]
  - DRUG INTERACTION [None]
  - LABORATORY TEST ABNORMAL [None]
  - MENTAL DISORDER [None]
  - TRAUMATIC BRAIN INJURY [None]
  - UNEVALUABLE EVENT [None]
